FAERS Safety Report 11218283 (Version 2)
Quarter: 2015Q3

REPORT INFORMATION
  Report Type: Spontaneous
  Country: HR (occurrence: HR)
  Receive Date: 20150625
  Receipt Date: 20150710
  Transmission Date: 20151125
  Serious: Yes (Death)
  Sender: FDA-Public Use
  Company Number: HR-TEVA-572376ISR

PATIENT
  Age: 60 Year
  Sex: Male

DRUGS (1)
  1. METOTREKSAT PLIVA [Suspect]
     Active Substance: METHOTREXATE
     Indication: NON-HODGKIN^S LYMPHOMA
     Dosage: 6800 MILLIGRAM DAILY;
     Route: 042
     Dates: start: 20150410

REACTIONS (4)
  - Pyrexia [Fatal]
  - Pancytopenia [Fatal]
  - Multi-organ failure [Fatal]
  - Hepatotoxicity [Fatal]

NARRATIVE: CASE EVENT DATE: 20150413
